FAERS Safety Report 5075503-X (Version None)
Quarter: 2006Q3

REPORT INFORMATION
  Report Type: 
  Country: None (occurrence: None)
  Receive Date: 20060804
  Receipt Date: 20060726
  Transmission Date: 20061208
  Serious: Yes (Other)
  Sender: FDA-Public Use
  Company Number: 2006-BP-08601RO

PATIENT
  Age: 38 Year
  Sex: Female
  Weight: 72 kg

DRUGS (3)
  1. PROPRANOLOL [Suspect]
     Indication: SUPRAVENTRICULAR TACHYCARDIA
     Dosage: 1.5 MG BOLUS, IV
     Route: 042
  2. ADENOSINE [Suspect]
     Indication: SUPRAVENTRICULAR TACHYCARDIA
     Dosage: IV
     Route: 042
  3. AMIODARONE (AMIODARONE) [Suspect]
     Indication: SUPRAVENTRICULAR TACHYCARDIA
     Dosage: 300MG BOLUS, THEN 38 MG/HR, IV
     Route: 042

REACTIONS (5)
  - APNOEA [None]
  - CARDIAC ARREST [None]
  - DRUG INEFFECTIVE [None]
  - LOSS OF CONSCIOUSNESS [None]
  - SINUS BRADYCARDIA [None]
